FAERS Safety Report 8521808-7 (Version None)
Quarter: 2012Q3

REPORT INFORMATION
  Report Type: 
  Country: None (occurrence: None)
  Receive Date: 20120719
  Receipt Date: 20120402
  Transmission Date: 20120928
  Serious: No
  Sender: FDA-Public Use
  Company Number: US-BRISTOL-MYERS SQUIBB COMPANY-16495475

PATIENT
  Sex: Male

DRUGS (1)
  1. YERVOY [Suspect]
     Dosage: 4 DOSES.

REACTIONS (3)
  - ORTHOSTATIC HYPOTENSION [None]
  - DEHYDRATION [None]
  - HYPOTHYROIDISM [None]
